FAERS Safety Report 10340481 (Version 2)
Quarter: 2014Q3

REPORT INFORMATION
  Report Type: Spontaneous
  Country: JP (occurrence: JP)
  Receive Date: 20140724
  Receipt Date: 20140805
  Transmission Date: 20150326
  Serious: Yes (Hospitalization)
  Sender: FDA-Public Use
  Company Number: JP-B.I. PHARMACEUTICALS,INC./RIDGEFIELD-2014-BI-33822GD

PATIENT
  Age: 79 Year
  Sex: Male

DRUGS (2)
  1. ARTIST [Concomitant]
     Active Substance: CARVEDILOL
     Indication: ATRIAL FIBRILLATION
     Dosage: 10 MG
     Route: 048
     Dates: start: 20130423
  2. PRADAXA [Suspect]
     Active Substance: DABIGATRAN ETEXILATE MESYLATE
     Indication: ATRIAL FIBRILLATION
     Dosage: 220 MG
     Route: 048
     Dates: start: 20130423, end: 20130622

REACTIONS (4)
  - Brain oedema [Unknown]
  - Haemorrhage intracranial [Not Recovered/Not Resolved]
  - Hemiparesis [Unknown]
  - Dysarthria [Unknown]

NARRATIVE: CASE EVENT DATE: 20130622
